FAERS Safety Report 8998926 (Version 1)
Quarter: 2013Q1

REPORT INFORMATION
  Report Type: Spontaneous
  Country: GB (occurrence: GB)
  Receive Date: 20130103
  Receipt Date: 20130103
  Transmission Date: 20140127
  Serious: Yes (Disabling)
  Sender: FDA-Public Use
  Company Number: GB-MERCK-1212GBR011250

PATIENT
  Age: 65 Year
  Sex: Male
  Weight: 80 kg

DRUGS (7)
  1. EZETIMIBE [Suspect]
     Indication: HYPERCHOLESTEROLAEMIA
     Dosage: 10 MG, QD
     Route: 048
     Dates: start: 20090703, end: 20121207
  2. AMLODIPINE [Concomitant]
     Dosage: 10 MG, QD
  3. ATORVASTATIN [Concomitant]
  4. BENDROFLUMETHIAZIDE [Concomitant]
  5. DOXAZOSIN MESYLATE [Concomitant]
  6. LANSOPRAZOLE [Concomitant]
  7. LISINOPRIL [Concomitant]

REACTIONS (5)
  - Campylobacter infection [Unknown]
  - Chorea [Recovered/Resolved]
  - Clostridium difficile infection [Unknown]
  - Tremor [Recovered/Resolved]
  - Muscle twitching [Recovered/Resolved]
